FAERS Safety Report 16150075 (Version 1)
Quarter: 2019Q2

REPORT INFORMATION
  Report Type: Spontaneous
  Country: US (occurrence: US)
  Receive Date: 20190402
  Receipt Date: 20190402
  Transmission Date: 20190711
  Serious: Yes (Other)
  Sender: FDA-Public Use
  Company Number: None

PATIENT
  Age: 61 Year
  Sex: Female
  Weight: 56.84 kg

DRUGS (20)
  1. POTASSIUM CHLORIDE. [Concomitant]
     Active Substance: POTASSIUM CHLORIDE
  2. SENNA [Concomitant]
     Active Substance: SENNA LEAF\SENNOSIDES\SENNOSIDES A AND B
  3. LEVAQUIN [Concomitant]
     Active Substance: LEVOFLOXACIN
  4. DECADRON [Concomitant]
     Active Substance: DEXAMETHASONE
  5. PROCHLORPERAZINE. [Concomitant]
     Active Substance: PROCHLORPERAZINE
  6. VITAMIN A [Concomitant]
     Active Substance: VITAMIN A
  7. L-CARNITINE [Concomitant]
     Active Substance: LEVOCARNITINE
  8. VITAMIN D NOS [Concomitant]
     Active Substance: VITAMIN D NOS
  9. LASIX [Concomitant]
     Active Substance: FUROSEMIDE
  10. IMODIUM [Concomitant]
     Active Substance: LOPERAMIDE HYDROCHLORIDE
  11. BOSULIF [Suspect]
     Active Substance: BOSUTINIB MONOHYDRATE
     Indication: MYELOID LEUKAEMIA
     Route: 048
     Dates: start: 20190320
  12. MEPRON [Concomitant]
     Active Substance: ATOVAQUONE
  13. MELATONIN [Concomitant]
     Active Substance: MELATONIN
  14. VALTREX [Concomitant]
     Active Substance: VALACYCLOVIR HYDROCHLORIDE
  15. COQ 10 [Concomitant]
     Active Substance: UBIDECARENONE
  16. FLUDROCORTISONE [Concomitant]
     Active Substance: FLUDROCORTISONE
  17. ZANTAC [Concomitant]
     Active Substance: RANITIDINE HYDROCHLORIDE
  18. COLACE [Concomitant]
     Active Substance: DOCUSATE SODIUM
  19. NOXAFIL [Concomitant]
     Active Substance: POSACONAZOLE
  20. VITAMIN C [Concomitant]
     Active Substance: ASCORBIC ACID

REACTIONS (1)
  - Back pain [None]
